FAERS Safety Report 9826417 (Version 1)
Quarter: 2013Q4

REPORT INFORMATION
  Report Type: Spontaneous
  Country: US (occurrence: None)
  Receive Date: 20131223
  Receipt Date: 20131223
  Transmission Date: 20140711
  Serious: Yes (Other)
  Sender: FDA-Public Use
  Company Number: 220131LEO

PATIENT
  Age: 63 Year
  Sex: Female

DRUGS (5)
  1. PICATO [Suspect]
     Indication: ACTINIC KERATOSIS
     Dosage: DAILY FOR THREE DAYS, TOPICAL
     Route: 061
     Dates: start: 20130110
  2. SYNTHROID (LEVOTHYROXINE SODIUM) (50 MCG) [Concomitant]
  3. PERMIN (ESTROGEN NOS) (0.9 MG) [Concomitant]
  4. LOVAZA (OMEGA-3 MARINE TRIGLYCERIDES) (1 G) [Concomitant]
  5. CRESTOR (ROSUVASTATIN) (10 MG) [Concomitant]

REACTIONS (6)
  - Application site erythema [None]
  - Application site scab [None]
  - Application site vesicles [None]
  - Application site pain [None]
  - Hyperaesthesia [None]
  - Drug administration error [None]
